FAERS Safety Report 12227063 (Version 2)
Quarter: 2016Q2

REPORT INFORMATION
  Report Type: Spontaneous
  Country: US (occurrence: US)
  Receive Date: 20160331
  Receipt Date: 20160405
  Transmission Date: 20160815
  Serious: Yes (Other)
  Sender: FDA-Public Use
  Company Number: US-TEVA-648575USA

PATIENT
  Age: 66 Year
  Sex: Male

DRUGS (7)
  1. VINCRISTINE [Suspect]
     Active Substance: VINCRISTINE
     Dosage: 4 CYCLES
     Route: 065
     Dates: start: 201302
  2. PREDNISOLONE. [Suspect]
     Active Substance: PREDNISOLONE
     Route: 065
  3. CYCLOPHOSPHAMIDE. [Suspect]
     Active Substance: CYCLOPHOSPHAMIDE
     Route: 065
     Dates: start: 201302
  4. HYDROXYDAUNORUBICIN [Suspect]
     Active Substance: DOXORUBICIN
     Route: 065
     Dates: start: 201302
  5. ACICLOVIR [Concomitant]
     Active Substance: ACYCLOVIR
  6. BACTRIM [Suspect]
     Active Substance: SULFAMETHOXAZOLE\TRIMETHOPRIM
     Indication: PNEUMOCYSTIS JIROVECII PNEUMONIA
     Dosage: 15.6 MG/KG/DAY OF TRIMETHOPRIM
     Route: 048
     Dates: start: 201304
  7. RITUXIMAB [Suspect]
     Active Substance: RITUXIMAB
     Dosage: 4 CYLES
     Route: 065
     Dates: start: 201302

REACTIONS (5)
  - Asterixis [Recovered/Resolved]
  - Myoclonus [Recovered/Resolved]
  - Pneumocystis jirovecii pneumonia [Unknown]
  - Postural tremor [Recovered/Resolved]
  - Thrombocytopenia [Recovered/Resolved]
